FAERS Safety Report 10444627 (Version 1)
Quarter: 2014Q3

REPORT INFORMATION
  Report Type: Spontaneous
  Country: US (occurrence: None)
  Receive Date: 20140909
  Receipt Date: 20140909
  Transmission Date: 20150326
  Serious: Yes (Disabling, Other)
  Sender: FDA-Public Use
  Company Number: None

PATIENT
  Age: 25 Year
  Sex: Female
  Weight: 54.43 kg

DRUGS (5)
  1. BUPROPION HCL XL [Suspect]
     Active Substance: BUPROPION HYDROCHLORIDE
     Indication: DEPRESSION
     Dosage: 1 PILL ONCE DAILY TAKEN BY MOUTH
     Route: 048
     Dates: start: 20140904, end: 20140908
  2. BUPROPION HCL XL [Suspect]
     Active Substance: BUPROPION HYDROCHLORIDE
     Indication: ATTENTION DEFICIT/HYPERACTIVITY DISORDER
     Dosage: 1 PILL ONCE DAILY TAKEN BY MOUTH
     Route: 048
     Dates: start: 20140904, end: 20140908
  3. BUPROPION HCL XL [Suspect]
     Active Substance: BUPROPION HYDROCHLORIDE
     Indication: BULIMIA NERVOSA
     Dosage: 1 PILL ONCE DAILY TAKEN BY MOUTH
     Route: 048
     Dates: start: 20140904, end: 20140908
  4. BUPROPION HCL XL [Suspect]
     Active Substance: BUPROPION HYDROCHLORIDE
     Indication: DECREASED APPETITE
     Dosage: 1 PILL ONCE DAILY TAKEN BY MOUTH
     Route: 048
     Dates: start: 20140904, end: 20140908
  5. BUPROPION HCL XL [Suspect]
     Active Substance: BUPROPION HYDROCHLORIDE
     Indication: ANXIETY
     Dosage: 1 PILL ONCE DAILY TAKEN BY MOUTH
     Route: 048
     Dates: start: 20140904, end: 20140908

REACTIONS (8)
  - Migraine [None]
  - Vision blurred [None]
  - Product quality issue [None]
  - Product substitution issue [None]
  - Headache [None]
  - Insomnia [None]
  - Anxiety [None]
  - Nausea [None]

NARRATIVE: CASE EVENT DATE: 20140905
